FAERS Safety Report 8549668-9 (Version None)
Quarter: 2012Q3

REPORT INFORMATION
  Report Type: 
  Country: None (occurrence: None)
  Receive Date: 20120730
  Receipt Date: 20120724
  Transmission Date: 20120928
  Serious: Yes (Death, Other)
  Sender: FDA-Public Use
  Company Number: SE-ASTRAZENECA-2012SE51996

PATIENT
  Sex: Male

DRUGS (2)
  1. OMEPRAZOLE (PRISOLEC) [Suspect]
     Route: 048
  2. CORTISONE ACETATE [Concomitant]
     Dosage: HIGH DOSES

REACTIONS (4)
  - RASH [None]
  - SUBCUTANEOUS ABSCESS [None]
  - CHRONIC OBSTRUCTIVE PULMONARY DISEASE [None]
  - LIVER INJURY [None]
